FAERS Safety Report 18966586 (Version 1)
Quarter: 2021Q1

REPORT INFORMATION
  Report Type: Spontaneous
  Country: IN (occurrence: IN)
  Receive Date: 20210303
  Receipt Date: 20210303
  Transmission Date: 20210420
  Serious: Yes (Other)
  Sender: FDA-Public Use
  Company Number: IN-ANIPHARMA-2021-IN-000035

PATIENT
  Age: 25 Year
  Sex: Male

DRUGS (2)
  1. DABIGATRAN [Suspect]
     Active Substance: DABIGATRAN
     Indication: CEREBRAL VENOUS THROMBOSIS
     Route: 048
  2. PHENYTOIN SODIUM (NON?SPECIFIC) [Suspect]
     Active Substance: PHENYTOIN SODIUM
     Indication: SEIZURE

REACTIONS (2)
  - Drug interaction [Unknown]
  - Cerebral venous thrombosis [Unknown]
